FAERS Safety Report 6796208-0 (Version None)
Quarter: 2010Q2

REPORT INFORMATION
  Report Type: 
  Country: None (occurrence: None)
  Receive Date: 20100624
  Receipt Date: 20100624
  Transmission Date: 20101027
  Serious: Yes (Other)
  Sender: FDA-Public Use
  Company Number: None

PATIENT
  Sex: Female
  Weight: 53.5244 kg

DRUGS (1)
  1. ACTONEL [Suspect]
     Indication: OSTEOPOROSIS
     Dosage: 1 TABLET MONTHLY ORAL
     Route: 048

REACTIONS (5)
  - ARTHRALGIA [None]
  - BONE PAIN [None]
  - HEADACHE [None]
  - INFLUENZA LIKE ILLNESS [None]
  - PHOTOPHOBIA [None]
